FAERS Safety Report 7663234 (Version 2)
Quarter: 2012Q4

REPORT INFORMATION
  Report Type: 
  Country: ES (occurrence: ES)
  Receive Date: 20101110
  Receipt Date: 20121206
  Transmission Date: 20130627
  Serious: Yes (Life-Threatening)
  Sender: FDA-Public Use
  Company Number: ES-GILEAD-2010-0033198

PATIENT
  Age: 78 Year
  Sex: Female

DRUGS (8)
  1. RANEXA [Suspect]
     Indication: MYOCARDIAL ISCHAEMIA
     Dosage: 500 mg, BID
     Route: 048
     Dates: start: 20100610, end: 20100613
  2. AMIODARONE [Interacting]
     Indication: ATRIAL FIBRILLATION
     Dosage: 200 mg, QD
     Route: 048
     Dates: start: 201001
  3. SIMVASTATINE [Concomitant]
     Indication: DYSLIPIDAEMIA
     Dosage: 20 mg, QD
     Route: 048
  4. FUROSEMIDE [Concomitant]
     Indication: HYPERTENSION
     Dosage: 40 mg, QD
  5. ADIRO [Concomitant]
     Indication: MYOCARDIAL ISCHAEMIA
     Dosage: 100 mg, QD
     Route: 048
     Dates: end: 20100613
  6. SINTROM [Concomitant]
     Indication: ATRIAL FIBRILLATION
     Route: 048
  7. TOPAMAX [Concomitant]
     Indication: ESSENTIAL TREMOR
     Dosage: 25 mg, BID
     Dates: end: 20100613
  8. NITROGLYCERINE [Concomitant]
     Route: 060

REACTIONS (2)
  - Torsade de pointes [Recovered/Resolved]
  - Drug interaction [Recovered/Resolved]
